FAERS Safety Report 7528061-1 (Version None)
Quarter: 2011Q2

REPORT INFORMATION
  Report Type: 
  Country: None (occurrence: None)
  Receive Date: 20110517
  Receipt Date: 20101104
  Transmission Date: 20111010
  Serious: Yes (Hospitalization)
  Sender: FDA-Public Use
  Company Number: ALL1-2010-05731

PATIENT
  Age: 90 Year
  Sex: Female

DRUGS (1)
  1. FOSRENOL [Suspect]
     Indication: HYPERPHOSPHATAEMIA
     Dosage: 250MG, 3 TIMES PER DAY WITH MEALS), ORAL
     Route: 048
     Dates: start: 20090101

REACTIONS (2)
  - ABDOMINAL PAIN [None]
  - CONSTIPATION [None]
